FAERS Safety Report 8179629-3 (Version None)
Quarter: 2012Q1

REPORT INFORMATION
  Report Type: 
  Country: None (occurrence: None)
  Receive Date: 20120229
  Receipt Date: 20120229
  Transmission Date: 20120608
  Serious: No
  Sender: FDA-Public Use
  Company Number: None

PATIENT
  Age: 56 Year
  Sex: Female
  Weight: 67.586 kg

DRUGS (1)
  1. RISPERDAL [Suspect]
     Dosage: 25 MG
     Dates: start: 20110501, end: 20120101

REACTIONS (10)
  - DIZZINESS [None]
  - BLINDNESS TRANSIENT [None]
  - FALL [None]
  - HOT FLUSH [None]
  - BRUXISM [None]
  - VERTIGO [None]
  - JAW DISORDER [None]
  - DYSPNOEA [None]
  - CHOKING SENSATION [None]
  - LACERATION [None]
